FAERS Safety Report 4560809-0 (Version None)
Quarter: 2005Q1

REPORT INFORMATION
  Report Type: 
  Country: None (occurrence: None)
  Receive Date: 20050121
  Receipt Date: 20020501
  Transmission Date: 20050727
  Serious: Yes (Death)
  Sender: FDA-Public Use
  Company Number: 3635

PATIENT
  Age: 2 Day
  Sex: Male

DRUGS (7)
  1. ATRACURIUM [Suspect]
     Indication: INTUBATION
     Dosage: 440 MCG/KG ONCE IV
     Route: 042
     Dates: start: 20000619, end: 20000619
  2. DIAMORPHINE [Concomitant]
  3. MENADIONE [Concomitant]
  4. ALBUMIN (HUMAN) [Concomitant]
  5. BENZYLPENICILLIN [Concomitant]
  6. GENTAMICIN [Concomitant]
  7. BERACTANT [Concomitant]

REACTIONS (7)
  - BRADYCARDIA [None]
  - CARDIO-RESPIRATORY ARREST [None]
  - DEATH NEONATAL [None]
  - DRUG TOXICITY [None]
  - MUSCLE RIGIDITY [None]
  - NEONATAL DISORDER [None]
  - OXYGEN SATURATION DECREASED [None]
